FAERS Safety Report 7065348-3 (Version None)
Quarter: 2010Q4

REPORT INFORMATION
  Report Type: 
  Country: None (occurrence: None)
  Receive Date: 20101019
  Receipt Date: 20101008
  Transmission Date: 20110411
  Serious: Yes (Death)
  Sender: FDA-Public Use
  Company Number: 2009AC000533

PATIENT
  Age: 70 Year
  Sex: Male

DRUGS (13)
  1. DIGOXIN [Suspect]
     Indication: CARDIAC FAILURE CONGESTIVE
     Dosage: 0.125 MG
     Dates: start: 20071217, end: 20071220
  2. DIGOXIN [Suspect]
     Dosage: 0.125 MG; QOD; PO
     Route: 048
     Dates: start: 20071221, end: 20071229
  3. NICOTINE [Concomitant]
  4. PLAVIX [Concomitant]
  5. LOPRESSOR [Concomitant]
  6. LISINOPRIL [Concomitant]
  7. LASIX [Concomitant]
  8. AMIODARONE HCL [Concomitant]
  9. POTASSIUM CHLORIDE [Concomitant]
  10. ASPIRIN [Concomitant]
  11. LEVABUTEROL [Concomitant]
  12. ALDACTONE [Concomitant]
  13. TOPROL-XL [Concomitant]

REACTIONS (3)
  - ACUTE CORONARY SYNDROME [None]
  - ECONOMIC PROBLEM [None]
  - MULTIPLE INJURIES [None]
